FAERS Safety Report 19174540 (Version 1)
Quarter: 2021Q2

REPORT INFORMATION
  Report Type: Spontaneous
  Country: PT (occurrence: PT)
  Receive Date: 20210423
  Receipt Date: 20210423
  Transmission Date: 20210717
  Serious: Yes (Hospitalization, Other)
  Sender: FDA-Public Use
  Company Number: NVSC2021PT086798

PATIENT
  Age: 38 Year
  Sex: Male

DRUGS (8)
  1. DEXAMETHASONE. [Concomitant]
     Active Substance: DEXAMETHASONE
     Dosage: 4 MG, BID (2ID)
     Route: 065
  2. LEVETIRACETAM. [Concomitant]
     Active Substance: LEVETIRACETAM
     Indication: PRODUCT USED FOR UNKNOWN INDICATION
     Dosage: 500 MG, BID
     Route: 065
  3. DEXAMETHASONE. [Concomitant]
     Active Substance: DEXAMETHASONE
     Indication: PRODUCT USED FOR UNKNOWN INDICATION
     Dosage: 4 MG, TID
     Route: 065
  4. ESOMEPRAZOLE. [Concomitant]
     Active Substance: ESOMEPRAZOLE MAGNESIUM
     Indication: PRODUCT USED FOR UNKNOWN INDICATION
     Dosage: 20 MG, QD
     Route: 065
  5. DABRAFENIB [Suspect]
     Active Substance: DABRAFENIB
     Indication: MALIGNANT MELANOMA STAGE III
     Dosage: 150 MG, BID
     Route: 065
     Dates: start: 20180530, end: 20200221
  6. TRAMETINIB [Suspect]
     Active Substance: TRAMETINIB
     Dosage: 2 MG, ID (DAILY)
     Route: 065
     Dates: end: 20200810
  7. DABRAFENIB [Suspect]
     Active Substance: DABRAFENIB
     Dosage: 150 MG, BID
     Route: 065
     Dates: end: 20200810
  8. TRAMETINIB [Suspect]
     Active Substance: TRAMETINIB
     Indication: MALIGNANT MELANOMA STAGE III
     Dosage: 2 MG, ID (DAILY)
     Route: 065
     Dates: start: 20180530, end: 20200221

REACTIONS (13)
  - Pneumonia [Unknown]
  - Respiratory tract infection [Unknown]
  - Coronavirus infection [Unknown]
  - Pyrexia [Unknown]
  - Oedema peripheral [Unknown]
  - Urosepsis [Unknown]
  - Urinary tract infection [Unknown]
  - Diarrhoea [Unknown]
  - Pneumonia [Unknown]
  - Pneumonia [Unknown]
  - Arthralgia [Unknown]
  - Oropharyngeal candidiasis [Unknown]
  - Constipation [Unknown]

NARRATIVE: CASE EVENT DATE: 20190121
